FAERS Safety Report 5087998-6 (Version None)
Quarter: 2006Q3

REPORT INFORMATION
  Report Type: 
  Country: None (occurrence: None)
  Receive Date: 20060823
  Receipt Date: 20060823
  Transmission Date: 20061208
  Serious: Yes (Hospitalization)
  Sender: FDA-Public Use
  Company Number: None

PATIENT
  Age: 82 Year
  Sex: Male
  Weight: 67.5 kg

DRUGS (11)
  1. HEPARIN [Suspect]
     Indication: DIALYSIS
     Dosage: 5000 UNIT/ML   1.8 ML ORT
     Dates: start: 20060423, end: 20060504
  2. CEFAZOLIN [Suspect]
     Indication: ANTI-INFECTIVE THERAPY
     Dosage: PORT, 1.9 ML VENOUS
     Dates: start: 20060427, end: 20060504
  3. HEPARIN [Concomitant]
  4. . [Concomitant]
  5. INSULIN [Concomitant]
  6. COMBIVENT [Concomitant]
  7. XALATAN [Concomitant]
  8. METOPROLOL TARTRATE [Concomitant]
  9. PANTOPRAZOLE SODIUM [Concomitant]
  10. TIMOLOL MALEATE [Concomitant]
  11. EPOGEN [Concomitant]

REACTIONS (8)
  - CARDIAC TAMPONADE [None]
  - HYPERSPLENISM [None]
  - LABORATORY TEST ABNORMAL [None]
  - PERICARDIAL EFFUSION [None]
  - PLATELET COUNT DECREASED [None]
  - SHOCK [None]
  - TRANSFUSION REACTION [None]
  - VENOUS PRESSURE INCREASED [None]
